FAERS Safety Report 18134252 (Version 1)
Quarter: 2020Q3

REPORT INFORMATION
  Report Type: Spontaneous
  Country: DE (occurrence: DE)
  Receive Date: 20200811
  Receipt Date: 20200811
  Transmission Date: 20201103
  Serious: Yes (Congenital Anomaly)
  Sender: FDA-Public Use
  Company Number: DE-JNJFOC-20200800757

PATIENT
  Sex: Female
  Weight: 3.94 kg

DRUGS (8)
  1. VAXIGRIPTETRA [Concomitant]
     Active Substance: INFLUENZA VIRUS VACCINE QUADRIVALENT TYPE A+B
     Indication: IMMUNISATION
     Route: 064
     Dates: start: 20191017, end: 20191017
  2. STELARA [Suspect]
     Active Substance: USTEKINUMAB
     Indication: CROHN^S DISEASE
     Route: 064
     Dates: start: 20190708, end: 20200413
  3. PROTOPIC [Concomitant]
     Active Substance: TACROLIMUS
     Indication: NEURODERMATITIS
     Dosage: 2 (TRIMESTER)
     Route: 064
  4. L?THYROXIN [Concomitant]
     Active Substance: LEVOTHYROXINE SODIUM
     Indication: HYPOTHYROIDISM
     Dosage: 100 [UG/D (BIS 75) ]
     Route: 064
     Dates: start: 20190708, end: 20200413
  5. MESALAZINE [Suspect]
     Active Substance: MESALAMINE
     Indication: CROHN^S DISEASE
     Route: 064
     Dates: start: 20190708, end: 20200413
  6. PARACETAMOL [Concomitant]
     Active Substance: ACETAMINOPHEN
     Indication: PYREXIA
     Dosage: 500 [MG/D ]/ ONE TABLET BETWEEN GW 6 AND 7
     Route: 064
  7. CEFURAX  250 [Concomitant]
     Indication: URINARY TRACT INFECTION
     Route: 064
  8. VITAMIN D3 [Concomitant]
     Active Substance: CHOLECALCIFEROL
     Indication: PROPHYLAXIS
     Route: 064
     Dates: start: 20190708, end: 20200413

REACTIONS (2)
  - Kidney duplex [Unknown]
  - Foetal exposure during pregnancy [Recovered/Resolved]
